FAERS Safety Report 10248241 (Version 1)
Quarter: 2014Q2

REPORT INFORMATION
  Report Type: Spontaneous
  Country: US (occurrence: US)
  Receive Date: 20140620
  Receipt Date: 20140620
  Transmission Date: 20141212
  Serious: Yes (Hospitalization, Other)
  Sender: FDA-Public Use
  Company Number: US-ROCHE-1420837

PATIENT
  Age: 68 Year
  Sex: Female

DRUGS (4)
  1. PEGASYS [Suspect]
     Indication: HEPATITIS C
     Route: 065
     Dates: start: 20130729, end: 20130918
  2. COPEGUS [Suspect]
     Indication: HEPATITIS C
     Dosage: DAILY
     Route: 048
     Dates: start: 20130729, end: 20130918
  3. SYNTHROID [Concomitant]
     Indication: THYROID DISORDER
     Route: 065
  4. BIOTIN [Concomitant]

REACTIONS (11)
  - White blood cell count decreased [Recovered/Resolved]
  - Red blood cell count decreased [Recovered/Resolved]
  - Pneumonia [Unknown]
  - Fall [Unknown]
  - Hip fracture [Unknown]
  - Asthenia [Unknown]
  - Abasia [Unknown]
  - Diarrhoea [Unknown]
  - Abdominal pain upper [Unknown]
  - Alopecia [Recovering/Resolving]
  - Dizziness [Unknown]
